FAERS Safety Report 12885472 (Version 8)
Quarter: 2017Q1

REPORT INFORMATION
  Report Type: Spontaneous
  Country: US (occurrence: US)
  Receive Date: 20161026
  Receipt Date: 20170306
  Transmission Date: 20170428
  Serious: Yes (Hospitalization, Other)
  Sender: FDA-Public Use
  Company Number: US-GLAXOSMITHKLINE-US2016GSK156530

PATIENT
  Age: 52 Year
  Sex: Female

DRUGS (42)
  1. FLOLAN [Suspect]
     Active Substance: EPOPROSTENOL SODIUM
     Indication: PULMONARY ARTERIAL HYPERTENSION
     Dosage: UNK
     Dates: start: 20161012
  2. FLOLAN [Suspect]
     Active Substance: EPOPROSTENOL SODIUM
     Dosage: 30 DF, CO
     Route: 042
  3. FLOLAN [Suspect]
     Active Substance: EPOPROSTENOL SODIUM
     Dosage: UNK
  4. NORCO [Concomitant]
     Active Substance: ACETAMINOPHEN\HYDROCODONE BITARTRATE
  5. FLOLAN [Suspect]
     Active Substance: EPOPROSTENOL SODIUM
     Dosage: 26 DF, UNK
     Route: 042
  6. SILDENAFIL. [Concomitant]
     Active Substance: SILDENAFIL
  7. ALBUTEROL HFA [Concomitant]
     Active Substance: ALBUTEROL SULFATE
  8. COMBIVENT RESPIMAT [Concomitant]
     Active Substance: ALBUTEROL SULFATE\IPRATROPIUM BROMIDE
  9. GABAPENTIN. [Concomitant]
     Active Substance: GABAPENTIN
  10. PREDNISONE. [Concomitant]
     Active Substance: PREDNISONE
  11. RANITIDINE. [Concomitant]
     Active Substance: RANITIDINE
  12. PEPCID [Concomitant]
     Active Substance: FAMOTIDINE
  13. SYNTHROID [Concomitant]
     Active Substance: LEVOTHYROXINE SODIUM
  14. DOCUSATE SODIUM. [Concomitant]
     Active Substance: DOCUSATE SODIUM
  15. FAMOTIDINE. [Concomitant]
     Active Substance: FAMOTIDINE
  16. FLOLAN [Suspect]
     Active Substance: EPOPROSTENOL SODIUM
     Dosage: 28 DF, UNK
     Route: 042
  17. OPSUMIT [Concomitant]
     Active Substance: MACITENTAN
  18. CETIRIZINE [Concomitant]
     Active Substance: CETIRIZINE HYDROCHLORIDE
  19. FOLIC ACID. [Concomitant]
     Active Substance: FOLIC ACID
  20. HEPARIN [Concomitant]
     Active Substance: HEPARIN SODIUM
  21. ZOFRAN [Concomitant]
     Active Substance: ONDANSETRON HYDROCHLORIDE
  22. FLOLAN [Suspect]
     Active Substance: EPOPROSTENOL SODIUM
     Dosage: 50 DF, CO
  23. POTASSIUM CHLORIDE. [Concomitant]
     Active Substance: POTASSIUM CHLORIDE
  24. ONDANSETRON [Concomitant]
     Active Substance: ONDANSETRON
  25. FLOLAN [Suspect]
     Active Substance: EPOPROSTENOL SODIUM
     Indication: PULMONARY HYPERTENSION
     Dosage: 18 NG/KG/MIN AT 30,000 NG/ML AT A PUMP RATE OF 73 ML/DAY
     Dates: start: 20161012
  26. FLOLAN [Suspect]
     Active Substance: EPOPROSTENOL SODIUM
     Indication: PULMONARY HYPERTENSION
     Dosage: UNK, U
     Dates: start: 20161012
  27. MACITENTAN [Concomitant]
     Active Substance: MACITENTAN
  28. INFLUENZA VACCINE [Concomitant]
     Active Substance: INFLUENZA VIRUS VACCINE
  29. FLUTICASONE NASAL SPRAY [Concomitant]
     Active Substance: FLUTICASONE
  30. FUROSEMIDE. [Concomitant]
     Active Substance: FUROSEMIDE
  31. MONTELUKAST [Concomitant]
     Active Substance: MONTELUKAST SODIUM
  32. REVATIO [Concomitant]
     Active Substance: SILDENAFIL CITRATE
  33. SYMBICORT [Concomitant]
     Active Substance: BUDESONIDE\FORMOTEROL FUMARATE DIHYDRATE
  34. PANTOPRAZOLE [Concomitant]
     Active Substance: PANTOPRAZOLE SODIUM
  35. FLOLAN [Suspect]
     Active Substance: EPOPROSTENOL SODIUM
     Dosage: 26 DF, CO
     Route: 042
  36. FLOLAN [Suspect]
     Active Substance: EPOPROSTENOL SODIUM
     Dosage: 28 DF, UNK
     Route: 042
  37. FLOLAN [Suspect]
     Active Substance: EPOPROSTENOL SODIUM
     Dosage: 50 DF, CO
     Route: 042
  38. LEVOTHYROXINE. [Concomitant]
     Active Substance: LEVOTHYROXINE
  39. PANTOPRAZOL [Concomitant]
     Active Substance: PANTOPRAZOLE SODIUM
  40. SPIRONOLACTONE. [Concomitant]
     Active Substance: SPIRONOLACTONE
  41. CLARITIN [Concomitant]
     Active Substance: LORATADINE
  42. HYDROCODONE-ACETAMINOPHEN [Concomitant]
     Active Substance: ACETAMINOPHEN\HYDROCODONE

REACTIONS (19)
  - Intestinal obstruction [Unknown]
  - Middle ear effusion [Not Recovered/Not Resolved]
  - Fatigue [Unknown]
  - Decreased appetite [Unknown]
  - Asthenia [Unknown]
  - Cough [Unknown]
  - Weight decreased [Unknown]
  - Emergency care [Not Recovered/Not Resolved]
  - Constipation [Recovered/Resolved]
  - Cardiac failure congestive [Unknown]
  - Dyspnoea exertional [Unknown]
  - Headache [Unknown]
  - Weight increased [Unknown]
  - Oedema peripheral [Unknown]
  - Dyspnoea [Unknown]
  - Fluid retention [Unknown]
  - Back pain [Recovered/Resolved]
  - Ear infection [Recovered/Resolved]
  - Abdominal pain [Unknown]

NARRATIVE: CASE EVENT DATE: 20161018
